FAERS Safety Report 9241194 (Version 2)
Quarter: 2014Q2

REPORT INFORMATION
  Report Type: Spontaneous
  Country: CO (occurrence: CO)
  Receive Date: 20130419
  Receipt Date: 20140509
  Transmission Date: 20141212
  Serious: Yes (Hospitalization)
  Sender: FDA-Public Use
  Company Number: CO-PFIZER INC-2013120663

PATIENT
  Age: 14 Year
  Sex: Male

DRUGS (7)
  1. GENOTROPIN [Suspect]
     Indication: GROWTH HORMONE DEFICIENCY
     Dosage: UNK MG, 1X/DAY
     Route: 058
     Dates: start: 2010, end: 201212
  2. GENOTROPIN [Suspect]
     Indication: BODY HEIGHT BELOW NORMAL
     Dosage: 1.8 MG, 1X/DAY
     Route: 058
     Dates: start: 201401
  3. IMMUNOGLOBULINS [Concomitant]
     Indication: IMMUNODEFICIENCY COMMON VARIABLE
     Dosage: EACH 21 DAYS SINCE 2002
     Dates: start: 2002
  4. MONTELUKAST [Concomitant]
     Indication: RHINITIS
     Dosage: UNK
     Dates: start: 2010
  5. MONTELUKAST [Concomitant]
     Indication: SINUSITIS
  6. MOMETASONE [Concomitant]
     Indication: RHINITIS
     Dosage: 1 PUFF IN THE MORNING AND 1 PUFF AT NIGHT
     Route: 045
     Dates: start: 2010
  7. MOMETASONE [Concomitant]
     Indication: SINUSITIS

REACTIONS (3)
  - Enteritis [Recovered/Resolved]
  - Abscess [Recovered/Resolved]
  - Blood glucose increased [Recovered/Resolved]
